FAERS Safety Report 7490455-0 (Version None)
Quarter: 2011Q2

REPORT INFORMATION
  Report Type: 
  Country: None (occurrence: None)
  Receive Date: 20110519
  Receipt Date: 20110512
  Transmission Date: 20111010
  Serious: Yes (Other)
  Sender: FDA-Public Use
  Company Number: US-RB-025164-11

PATIENT
  Age: 6 Year
  Sex: Female
  Weight: 23 kg

DRUGS (1)
  1. MUCINEX [Suspect]
     Dosage: PATIENT TOOK 1 PACKET AT 5.30PM ON 11-MAY-2011 AND PACKET AT 9.30PM. TOOK ANOTHER AT 6.30AM TODAY
     Route: 048

REACTIONS (2)
  - DIZZINESS [None]
  - EPISTAXIS [None]
